FAERS Safety Report 10154314 (Version 4)
Quarter: 2016Q2

REPORT INFORMATION
  Report Type: Spontaneous
  Country: IE (occurrence: IE)
  Receive Date: 20140506
  Receipt Date: 20160530
  Transmission Date: 20160815
  Serious: Yes (Other)
  Sender: FDA-Public Use
  Company Number: IE-JNJFOC-20140303074

PATIENT
  Sex: Male

DRUGS (3)
  1. XEPLION [Suspect]
     Active Substance: PALIPERIDONE PALMITATE
     Indication: PRODUCT USED FOR UNKNOWN INDICATION
     Route: 030
  2. XEPLION [Suspect]
     Active Substance: PALIPERIDONE PALMITATE
     Indication: PRODUCT USED FOR UNKNOWN INDICATION
     Route: 030
  3. XEPLION [Suspect]
     Active Substance: PALIPERIDONE PALMITATE
     Indication: PRODUCT USED FOR UNKNOWN INDICATION
     Route: 030

REACTIONS (28)
  - Pancreatitis [Unknown]
  - Onychomycosis [Unknown]
  - Insomnia [Unknown]
  - Pyrexia [Unknown]
  - Oropharyngeal pain [Unknown]
  - Nausea [Unknown]
  - Gynaecomastia [Unknown]
  - Anal haemorrhage [Unknown]
  - Neuroleptic malignant syndrome [Unknown]
  - Polydipsia [Unknown]
  - Sexual dysfunction [Unknown]
  - Agitation [Unknown]
  - Activities of daily living impaired [Unknown]
  - Heart rate irregular [Unknown]
  - Emotional distress [Unknown]
  - Vision blurred [Unknown]
  - Treatment noncompliance [Unknown]
  - Hot flush [Unknown]
  - Dyspnoea [Unknown]
  - Urinary retention [Unknown]
  - Head titubation [Unknown]
  - Balance disorder [Unknown]
  - Epistaxis [Unknown]
  - Headache [Unknown]
  - Dysphagia [Unknown]
  - Musculoskeletal stiffness [Unknown]
  - Nightmare [Unknown]
  - Hypometabolism [Unknown]
